FAERS Safety Report 5194236-2 (Version None)
Quarter: 2006Q4

REPORT INFORMATION
  Report Type: 
  Country: None (occurrence: None)
  Receive Date: 20061228
  Receipt Date: 20060405
  Transmission Date: 20070319
  Serious: Yes (Other)
  Sender: FDA-Public Use
  Company Number: US-PFIZER INC-2006049043

PATIENT
  Sex: Female

DRUGS (2)
  1. NEURONTIN [Suspect]
     Indication: MYALGIA
     Dosage: DAILY DOSE:2700MG
     Dates: start: 20031101, end: 20040601
  2. NEURONTIN [Suspect]
     Indication: ARTHRALGIA

REACTIONS (5)
  - INJURY [None]
  - INTENTIONAL OVERDOSE [None]
  - POST-TRAUMATIC STRESS DISORDER [None]
  - SELF MUTILATION [None]
  - SUICIDE ATTEMPT [None]
